APPROVED DRUG PRODUCT: LIOTHYRONINE SODIUM
Active Ingredient: LIOTHYRONINE SODIUM
Strength: EQ 0.025MG BASE
Dosage Form/Route: TABLET;ORAL
Application: A085755 | Product #001
Applicant: WATSON LABORATORIES INC
Approved: Jan 25, 1982 | RLD: No | RS: No | Type: DISCN